FAERS Safety Report 7392672-7 (Version None)
Quarter: 2011Q2

REPORT INFORMATION
  Report Type: 
  Country: None (occurrence: None)
  Receive Date: 20110404
  Receipt Date: 20110325
  Transmission Date: 20111010
  Serious: Yes (Hospitalization, Other)
  Sender: FDA-Public Use
  Company Number: US-ASTRAZENECA-2011SE12304

PATIENT
  Age: 71 Year
  Sex: Female
  Weight: 79.4 kg

DRUGS (23)
  1. SEROQUEL [Suspect]
     Indication: BIPOLAR DISORDER
     Route: 048
     Dates: start: 20070101
  2. SEROQUEL [Suspect]
     Route: 048
     Dates: start: 20100101
  3. SYNTHROID [Concomitant]
     Indication: THYROID THERAPY
  4. NEXIUM [Suspect]
     Indication: PROPHYLAXIS AGAINST GASTROINTESTINAL ULCER
     Route: 048
     Dates: start: 20050101
  5. SEROQUEL [Suspect]
     Route: 048
     Dates: end: 20100101
  6. ASPIRIN [Concomitant]
  7. SEROQUEL [Suspect]
     Route: 048
  8. FISH OIL [Concomitant]
  9. STOOL SOFTENER [Concomitant]
     Dosage: DAILY
  10. SEROQUEL [Suspect]
     Indication: SLEEP DISORDER
     Route: 048
     Dates: start: 20070101
  11. SEROQUEL [Suspect]
     Route: 048
     Dates: start: 20080101
  12. SEROQUEL [Suspect]
     Route: 048
     Dates: start: 20080101
  13. SEROQUEL [Suspect]
     Route: 048
     Dates: end: 20100101
  14. KLONOPIN [Concomitant]
     Indication: BIPOLAR DISORDER
  15. ESTRADIOL [Concomitant]
     Indication: HORMONE THERAPY
  16. TRICOR [Concomitant]
     Indication: HYPERCHOLESTEROLAEMIA
  17. TRAMADOL [Concomitant]
     Indication: ARTHRITIS
  18. LASIX [Concomitant]
  19. SEROQUEL [Suspect]
     Route: 048
  20. TOPAMAX [Concomitant]
     Indication: BIPOLAR DISORDER
  21. PRILOSEC [Suspect]
     Route: 048
  22. SEROQUEL [Suspect]
     Route: 048
     Dates: start: 20100101
  23. LIPITOR [Concomitant]
     Indication: HYPERCHOLESTEROLAEMIA

REACTIONS (13)
  - SOMNOLENCE [None]
  - DRUG DOSE OMISSION [None]
  - INSOMNIA [None]
  - MANIA [None]
  - WEIGHT DECREASED [None]
  - FATIGUE [None]
  - DRUG INEFFECTIVE [None]
  - STENT PLACEMENT [None]
  - DECREASED APPETITE [None]
  - THERAPY REGIMEN CHANGED [None]
  - BIPOLAR DISORDER [None]
  - EATING DISORDER SYMPTOM [None]
  - GASTRIC DISORDER [None]
